FAERS Safety Report 6269371-8 (Version None)
Quarter: 2009Q3

REPORT INFORMATION
  Report Type: 
  Country: None (occurrence: None)
  Receive Date: 20090713
  Receipt Date: 20090701
  Transmission Date: 20100115
  Serious: Yes (Death)
  Sender: FDA-Public Use
  Company Number: GXKR2009NL07697

PATIENT
  Age: 51 Year
  Sex: Female

DRUGS (4)
  1. ACETAMINOPHEN [Suspect]
     Indication: ABDOMINAL PAIN
     Dosage: 2 G/DAY
  2. ALENDRONATE SODIUM [Concomitant]
  3. CALCIUM CARBONATE (CALCIUM CARBONATE) [Concomitant]
  4. TEMAZEPAM [Concomitant]

REACTIONS (13)
  - ABDOMINAL DISTENSION [None]
  - ABDOMINAL PAIN [None]
  - ACUTE HEPATIC FAILURE [None]
  - ASTHENIA [None]
  - DIARRHOEA [None]
  - DISEASE COMPLICATION [None]
  - HAEMODIALYSIS [None]
  - HEPATIC CIRRHOSIS [None]
  - HEPATORENAL SYNDROME [None]
  - JAUNDICE [None]
  - METABOLIC ACIDOSIS [None]
  - MULTI-ORGAN FAILURE [None]
  - SYSTEMIC INFLAMMATORY RESPONSE SYNDROME [None]
